FAERS Safety Report 10648780 (Version 1)
Quarter: 2014Q4

REPORT INFORMATION
  Report Type: Report from Study
  Country: US (occurrence: US)
  Receive Date: 20141212
  Receipt Date: 20141212
  Transmission Date: 20150529
  Serious: Yes (Hospitalization)
  Sender: FDA-Public Use
  Company Number: US-PURDUE-USA-2014-0119579

PATIENT
  Age: 41 Year
  Sex: Female

DRUGS (1)
  1. OXYCONTIN [Suspect]
     Active Substance: OXYCODONE HYDROCHLORIDE
     Indication: PAIN
     Dosage: 160 MG, Q12H
     Route: 048
     Dates: start: 2011

REACTIONS (7)
  - Pain [Unknown]
  - Feeling abnormal [Unknown]
  - Bedridden [Unknown]
  - Diarrhoea [Unknown]
  - Cholecystectomy [Unknown]
  - Drug withdrawal syndrome [Unknown]
  - Feeling of body temperature change [Unknown]

NARRATIVE: CASE EVENT DATE: 201409
